FAERS Safety Report 6244859-4 (Version None)
Quarter: 2009Q2

REPORT INFORMATION
  Report Type: 
  Country: None (occurrence: None)
  Receive Date: 20090625
  Receipt Date: 20090618
  Transmission Date: 20091009
  Serious: Yes (Death)
  Sender: FDA-Public Use
  Company Number: A0792262A

PATIENT
  Age: 82 Year
  Sex: Female

DRUGS (6)
  1. ARIXTRA [Suspect]
     Dosage: 7.5MGML PER DAY
     Route: 058
     Dates: start: 20090101, end: 20090306
  2. GABAPENTIN [Concomitant]
  3. PREDNISONE [Concomitant]
  4. PRILOSEC [Concomitant]
  5. METHADONE [Concomitant]
  6. ONDANSETRON [Concomitant]

REACTIONS (2)
  - BREAST CANCER METASTATIC [None]
  - RESPIRATORY FAILURE [None]
